FAERS Safety Report 6924252-9 (Version None)
Quarter: 2010Q3

REPORT INFORMATION
  Report Type: 
  Country: None (occurrence: None)
  Receive Date: 20100811
  Receipt Date: 20100811
  Transmission Date: 20110219
  Serious: No
  Sender: FDA-Public Use
  Company Number: None

PATIENT
  Age: 77 Year
  Sex: Male
  Weight: 112 kg

DRUGS (1)
  1. BENDAMUSTINE [Suspect]
     Dosage: 918 MG OTHER IV
     Route: 042
     Dates: start: 20100510, end: 20100625

REACTIONS (2)
  - HYPOTENSION [None]
  - SYNCOPE [None]
